FAERS Safety Report 24740825 (Version 1)
Quarter: 2024Q4

REPORT INFORMATION
  Report Type: Spontaneous
  Country: PL (occurrence: PL)
  Receive Date: 20241217
  Receipt Date: 20241217
  Transmission Date: 20250114
  Serious: Yes (Other)
  Sender: OCTAPHARMA
  Company Number: PL-OCTA-2024000170

PATIENT
  Age: 62 Year
  Sex: Male

DRUGS (1)
  1. HUMAN IMMUNOGLOBULIN G [Suspect]
     Active Substance: HUMAN IMMUNOGLOBULIN G
     Indication: Cerebral amyloid angiopathy
     Route: 042

REACTIONS (3)
  - Renal failure [Unknown]
  - Pyrexia [Unknown]
  - Drug ineffective [Unknown]
